FAERS Safety Report 6865459-9 (Version None)
Quarter: 2010Q3

REPORT INFORMATION
  Report Type: 
  Country: None (occurrence: None)
  Receive Date: 20100721
  Receipt Date: 20080425
  Transmission Date: 20110219
  Serious: No
  Sender: FDA-Public Use
  Company Number: US-PFIZER INC-2008038767

PATIENT
  Sex: Male
  Weight: 190.9 kg

DRUGS (2)
  1. CHANTIX [Suspect]
     Indication: SMOKING CESSATION THERAPY
     Dates: start: 20080201
  2. NEXIUM [Concomitant]
     Indication: GASTRIC DISORDER

REACTIONS (2)
  - AMNESIA [None]
  - NIGHTMARE [None]
